FAERS Safety Report 5917531-5 (Version None)
Quarter: 2008Q4

REPORT INFORMATION
  Report Type: 
  Country: None (occurrence: None)
  Receive Date: 20081014
  Receipt Date: 20081007
  Transmission Date: 20090506
  Serious: Yes (Other)
  Sender: FDA-Public Use
  Company Number: ZA-AVENTIS-200819593GDDC

PATIENT
  Age: 19 Year
  Sex: Male
  Weight: 58 kg

DRUGS (5)
  1. RIFAMPICIN [Suspect]
     Indication: TUBERCULOSIS
     Dates: start: 20080801
  2. ISONIAZID [Suspect]
     Indication: TUBERCULOSIS
     Dates: start: 20080801
  3. PYRAZINAMIDE [Suspect]
     Indication: TUBERCULOSIS
     Dates: start: 20080801
  4. ETHAMBUTOL HYDROCHLORIDE [Suspect]
     Indication: TUBERCULOSIS
     Dates: start: 20080801
  5. CODE UNBROKEN [Suspect]
     Indication: TUBERCULOSIS
     Dates: start: 20080801

REACTIONS (1)
  - BLOOD AMYLASE INCREASED [None]
